FAERS Safety Report 4637335-3 (Version None)
Quarter: 2005Q2

REPORT INFORMATION
  Report Type: 
  Country: None (occurrence: None)
  Receive Date: 20050418
  Receipt Date: 20031118
  Transmission Date: 20051028
  Serious: Yes (Hospitalization)
  Sender: FDA-Public Use
  Company Number: 200311361JP

PATIENT
  Age: 48 Year
  Sex: Female
  Weight: 53.5 kg

DRUGS (8)
  1. ARAVA [Suspect]
     Indication: RHEUMATOID ARTHRITIS
     Route: 048
     Dates: start: 20031103, end: 20031117
  2. RELIFEN [Concomitant]
     Indication: PAIN
     Dosage: DOSE: 2T
     Route: 048
  3. QUESTRAN [Concomitant]
  4. GASTER [Concomitant]
     Route: 048
  5. MUCOSTA [Concomitant]
     Route: 048
  6. PREDONINE [Concomitant]
     Indication: INFLAMMATION
     Route: 048
  7. VOLTAREN [Concomitant]
  8. RHEUMATREX [Concomitant]
     Indication: RHEUMATOID ARTHRITIS
     Dosage: DOSE: 8-6
     Route: 048
     Dates: end: 20031031

REACTIONS (7)
  - ALANINE AMINOTRANSFERASE INCREASED [None]
  - ASPARTATE AMINOTRANSFERASE INCREASED [None]
  - GENERALISED ERYTHEMA [None]
  - PLATELET COUNT DECREASED [None]
  - PYREXIA [None]
  - RASH [None]
  - WHITE BLOOD CELL COUNT DECREASED [None]
